FAERS Safety Report 9435903 (Version 1)
Quarter: 2013Q3

REPORT INFORMATION
  Report Type: Spontaneous
  Country: US (occurrence: US)
  Receive Date: 20130801
  Receipt Date: 20130801
  Transmission Date: 20140515
  Serious: Yes (Hospitalization, Other)
  Sender: FDA-Public Use
  Company Number: US-BAYER-2013-092260

PATIENT
  Sex: Female
  Weight: 54.42 kg

DRUGS (3)
  1. ALEVE CAPLET [Suspect]
     Indication: RELAXATION THERAPY
     Route: 048
  2. ALEVE CAPLET [Suspect]
     Indication: RELAXATION THERAPY
     Dosage: DAILY
     Route: 048
  3. SYNTHROID [Concomitant]

REACTIONS (4)
  - Haematemesis [Recovered/Resolved]
  - Gastric haemorrhage [Recovered/Resolved]
  - Off label use [None]
  - Incorrect drug administration duration [None]
